FAERS Safety Report 18227097 (Version 1)
Quarter: 2020Q3

REPORT INFORMATION
  Report Type: Spontaneous
  Country: US (occurrence: US)
  Receive Date: 20200902
  Receipt Date: 20200902
  Transmission Date: 20201103
  Serious: Yes (Life-Threatening, Other)
  Sender: FDA-Public Use
  Company Number: None

PATIENT
  Age: 58 Year
  Sex: Female
  Weight: 74.84 kg

DRUGS (10)
  1. AMITIZA [Suspect]
     Active Substance: LUBIPROSTONE
     Indication: GASTRIC DISORDER
     Dosage: ?          QUANTITY:, .,.TR;A?_ .TT?T?U?.^ LL;?
     Route: 048
     Dates: start: 201910, end: 20200309
  2. ACYCLOVIR. [Concomitant]
     Active Substance: ACYCLOVIR
  3. LORAZEPAM. [Concomitant]
     Active Substance: LORAZEPAM
  4. SUPER B [Concomitant]
  5. PROTEIN POWDER [Concomitant]
  6. METROPOLOLO ER [Concomitant]
  7. PROBIOTICS [Concomitant]
     Active Substance: PROBIOTICS NOS
  8. POTASSIUM [Concomitant]
     Active Substance: POTASSIUM
  9. AMITIZA [Suspect]
     Active Substance: LUBIPROSTONE
     Indication: IRRITABLE BOWEL SYNDROME
     Dosage: ?          QUANTITY:, .,.TR;A?_ .TT?T?U?.^ LL;?
     Route: 048
     Dates: start: 201910, end: 20200309
  10. MAGNESIUM [Concomitant]
     Active Substance: MAGNESIUM

REACTIONS (5)
  - Dyspnoea [None]
  - Intestinal operation [None]
  - Respiratory disorder [None]
  - Poisoning [None]
  - Renal disorder [None]
